FAERS Safety Report 8023861-6 (Version None)
Quarter: 2012Q1

REPORT INFORMATION
  Report Type: 
  Country: None (occurrence: None)
  Receive Date: 20120105
  Receipt Date: 20111229
  Transmission Date: 20120608
  Serious: Yes (Life-Threatening, Hospitalization, Other)
  Sender: FDA-Public Use
  Company Number: US-JNJFOC-20111006630

PATIENT
  Sex: Male
  Weight: 68.95 kg

DRUGS (12)
  1. PROPRANOLOL [Concomitant]
     Route: 048
  2. SPIRIVA [Concomitant]
  3. STELARA [Suspect]
     Indication: PSORIASIS
     Route: 058
     Dates: start: 20110920
  4. OMEPRAZOLE [Concomitant]
     Route: 048
  5. AMLODIPINE [Concomitant]
     Route: 048
  6. FLOMAX [Concomitant]
     Route: 048
  7. FLUTICASONE FUROATE [Concomitant]
  8. ASPIRIN [Concomitant]
     Route: 048
  9. STELARA [Suspect]
     Route: 058
     Dates: start: 20110201
  10. ALBUTEROL [Concomitant]
     Route: 055
  11. PRIMIDONE [Concomitant]
     Route: 048
  12. PRAVASTATIN [Concomitant]
     Route: 048

REACTIONS (4)
  - TRACHEOBRONCHITIS [None]
  - MYOCARDIAL INFARCTION [None]
  - ACUTE RESPIRATORY FAILURE [None]
  - PNEUMONIA [None]
